FAERS Safety Report 5958159-0 (Version None)
Quarter: 2008Q4

REPORT INFORMATION
  Report Type: 
  Country: None (occurrence: None)
  Receive Date: 20081117
  Receipt Date: 20081105
  Transmission Date: 20090506
  Serious: Yes (Other)
  Sender: FDA-Public Use
  Company Number: FR-SEPTODONT200800211

PATIENT
  Sex: Female

DRUGS (1)
  1. SCANDONSET 3 % PLAIN (MEPIVACAINE HYDROCHLORIDE) [Suspect]
     Indication: LOCAL ANAESTHESIA
     Dosage: DENTAL INJECTION
     Route: 004
     Dates: start: 20081103

REACTIONS (1)
  - ANGIOEDEMA [None]
